FAERS Safety Report 8300063-7 (Version None)
Quarter: 2012Q2

REPORT INFORMATION
  Report Type: 
  Country: None (occurrence: None)
  Receive Date: 20120420
  Receipt Date: 20120416
  Transmission Date: 20120825
  Serious: Yes (Hospitalization, Disabling, Other)
  Sender: FDA-Public Use
  Company Number: US-PFIZER INC-2012080414

PATIENT
  Sex: Female

DRUGS (6)
  1. BACLOFEN [Concomitant]
     Dosage: UNK
  2. CELEBREX [Suspect]
     Indication: ARTHRALGIA
  3. ATIVAN [Concomitant]
     Dosage: UNK
  4. CELEBREX [Suspect]
     Indication: ARTHRITIS
     Dosage: 200 MG, 1X/DAY
  5. CELEBREX [Suspect]
     Indication: JOINT CONTRACTURE
  6. COCAINE [Suspect]
     Dosage: UNK

REACTIONS (3)
  - HEMIPLEGIA [None]
  - HYPERTENSION [None]
  - CEREBROVASCULAR ACCIDENT [None]
